FAERS Safety Report 20527419 (Version 1)
Quarter: 2022Q1

REPORT INFORMATION
  Report Type: Spontaneous
  Country: US (occurrence: US)
  Receive Date: 20220228
  Receipt Date: 20220228
  Transmission Date: 20220423
  Serious: Yes (Other)
  Sender: FDA-Public Use
  Company Number: US-NOVARTISPH-NVSC2022US046832

PATIENT
  Age: 71 Year
  Sex: Female

DRUGS (2)
  1. RANITIDINE [Suspect]
     Active Substance: RANITIDINE
     Indication: Dyspepsia
     Dosage: 300 MG,,PERIODS OF NON-USE (AT LEAST 3 MONTHS WITHOUT USE),
     Route: 048
     Dates: start: 199411, end: 202004
  2. RANITIDINE [Suspect]
     Active Substance: RANITIDINE
     Indication: Dyspepsia
     Dosage: 300 MG,,PERIODS OF NON-USE (AT LEAST 3 MONTHS WITHOUT USE),
     Route: 048
     Dates: start: 199411, end: 202004

REACTIONS (5)
  - Breast cancer [Unknown]
  - Tongue neoplasm malignant stage unspecified [Unknown]
  - Incorrect dose administered [Unknown]
  - Inappropriate schedule of product administration [Unknown]
  - Product use in unapproved indication [Unknown]

NARRATIVE: CASE EVENT DATE: 20151110
